FAERS Safety Report 21873446 (Version 2)
Quarter: 2023Q1

REPORT INFORMATION
  Report Type: Report from Study
  Country: US (occurrence: US)
  Receive Date: 20230117
  Receipt Date: 20230123
  Transmission Date: 20230418
  Serious: Yes (Death, Hospitalization, Other)
  Sender: FDA-Public Use
  Company Number: US-GILEAD-2023-0612908

PATIENT
  Sex: Male
  Weight: 96.1 kg

DRUGS (27)
  1. SOFOSBUVIR\VELPATASVIR [Suspect]
     Active Substance: SOFOSBUVIR\VELPATASVIR
     Indication: Hepatitis C
     Dosage: 1 DOSAGE FORM, QD, 400/100 MG
     Route: 048
     Dates: start: 20181026, end: 20190118
  2. HYDROMORPHONE [Concomitant]
     Active Substance: HYDROMORPHONE
  3. COLACE [Concomitant]
     Active Substance: DOCUSATE SODIUM
  4. NYSTATIN [Concomitant]
     Active Substance: NYSTATIN
  5. SENOKOT [Concomitant]
     Active Substance: SENNOSIDES
  6. SEPTRA [Concomitant]
     Active Substance: SULFAMETHOXAZOLE\TRIMETHOPRIM
  7. AMITRIPTYLINE [Concomitant]
     Active Substance: AMITRIPTYLINE
  8. TYLENOL [Concomitant]
     Active Substance: ACETAMINOPHEN
  9. ZOPICLONE [Concomitant]
     Active Substance: ZOPICLONE
  10. LIPITOR [Concomitant]
     Active Substance: ATORVASTATIN CALCIUM
  11. MAGNESIUM [Concomitant]
     Active Substance: MAGNESIUM
  12. OXIDEN [Concomitant]
  13. MYFORTIC [Concomitant]
     Active Substance: MYCOPHENOLATE SODIUM
  14. NEORAL [Concomitant]
     Active Substance: CYCLOSPORINE
  15. CIPROFLOXACIN [Concomitant]
     Active Substance: CIPROFLOXACIN
  16. BISOPROLOL [Concomitant]
     Active Substance: BISOPROLOL
  17. CALCIUM CARBONATE [Concomitant]
     Active Substance: CALCIUM CARBONATE
  18. VITAMIN D COMPLEX [Concomitant]
  19. FERROUS FUMARATE [Concomitant]
     Active Substance: FERROUS FUMARATE
  20. ASPIRIN [Concomitant]
     Active Substance: ASPIRIN
  21. ALENDRONATE [Concomitant]
     Active Substance: ALENDRONATE SODIUM
  22. FUROSEMIDE\POTASSIUM CHLORIDE [Concomitant]
     Active Substance: FUROSEMIDE\POTASSIUM CHLORIDE
  23. GABAPENTIN [Concomitant]
     Active Substance: GABAPENTIN
  24. PREDNISONE [Concomitant]
     Active Substance: PREDNISONE
  25. VALCYTE [Concomitant]
     Active Substance: VALGANCICLOVIR HYDROCHLORIDE
  26. LANTUS [Concomitant]
     Active Substance: INSULIN GLARGINE
  27. HUMALOG [Concomitant]
     Active Substance: INSULIN LISPRO

REACTIONS (2)
  - Transplant dysfunction [Fatal]
  - Pneumonia [Unknown]

NARRATIVE: CASE EVENT DATE: 20181116
